FAERS Safety Report 7341948-8 (Version None)
Quarter: 2011Q1

REPORT INFORMATION
  Report Type: 
  Country: None (occurrence: None)
  Receive Date: 20110309
  Receipt Date: 20110302
  Transmission Date: 20110831
  Serious: Yes (Hospitalization)
  Sender: FDA-Public Use
  Company Number: US-PERRIGO-10US013492

PATIENT
  Sex: Female
  Weight: 21.769 kg

DRUGS (1)
  1. ACETAMINOPHEN [Suspect]
     Indication: PYREXIA
     Dosage: 480 MG, SINGLE
     Route: 048
     Dates: start: 20100927, end: 20100927

REACTIONS (16)
  - PHARYNGEAL ERYTHEMA [None]
  - ABASIA [None]
  - BODY TEMPERATURE INCREASED [None]
  - PHARYNGEAL OEDEMA [None]
  - DYSPNOEA [None]
  - THROAT IRRITATION [None]
  - ABDOMINAL TENDERNESS [None]
  - FEELING DRUNK [None]
  - ENERGY INCREASED [None]
  - WHITE BLOOD CELL COUNT INCREASED [None]
  - OXYGEN SATURATION DECREASED [None]
  - CYANOSIS [None]
  - OROPHARYNGEAL PAIN [None]
  - WHEEZING [None]
  - VOMITING [None]
  - INCORRECT DOSE ADMINISTERED [None]
